FAERS Safety Report 5839479-7 (Version None)
Quarter: 2008Q3

REPORT INFORMATION
  Report Type: 
  Country: None (occurrence: None)
  Receive Date: 20080807
  Receipt Date: 20080728
  Transmission Date: 20090109
  Serious: Yes (Death)
  Sender: FDA-Public Use
  Company Number: GXKR2007GB10030

PATIENT
  Age: 73 Year
  Sex: Male

DRUGS (5)
  1. ACETYLSALICYLIC ACID SRT [Suspect]
     Indication: ACUTE CORONARY SYNDROME
     Dosage: 75 MG, QD, ORAL
     Route: 048
     Dates: end: 20060604
  2. ACETYLSALICYLIC ACID SRT [Suspect]
     Indication: ACUTE CORONARY SYNDROME
     Dosage: 75 MG, QD, ORAL
     Route: 048
     Dates: end: 20060604
  3. CLEXANE       (ENOXAPARIN SODIUM,  HEAPRIN-FRACTION, SODIUM SALT) [Suspect]
     Indication: ACUTE CORONARY SYNDROME
     Dosage: 70 MG, BID, SUBCUTANEOUS
     Route: 058
     Dates: end: 20060604
  4. PLAVIX [Suspect]
     Indication: ACUTE CORONARY SYNDROME
     Dosage: 75 MG, QD, ORAL
     Route: 048
     Dates: end: 20060604
  5. PLAVIX [Suspect]
     Indication: STENT PLACEMENT
     Dosage: 75 MG, QD, ORAL
     Route: 048
     Dates: end: 20060604

REACTIONS (4)
  - ANAEMIA [None]
  - GASTROINTESTINAL HAEMORRHAGE [None]
  - HAEMOGLOBIN DECREASED [None]
  - MELAENA [None]
